FAERS Safety Report 8092553-X (Version None)
Quarter: 2012Q1

REPORT INFORMATION
  Report Type: 
  Country: None (occurrence: None)
  Receive Date: 20120128
  Receipt Date: 20110829
  Transmission Date: 20120608
  Serious: No
  Sender: FDA-Public Use
  Company Number: US-ABBOTT-11P-163-0849890-00

PATIENT
  Sex: Female

DRUGS (7)
  1. HUMIRA [Suspect]
     Indication: PSORIATIC ARTHROPATHY
     Dates: start: 20070101
  2. BENICAR [Concomitant]
     Indication: HYPERTENSION
  3. ENABLEX [Concomitant]
     Indication: INCONTINENCE
  4. CRESTOR [Concomitant]
     Indication: HYPERLIPIDAEMIA
  5. ATENOLOL [Concomitant]
     Indication: HYPERTENSION
  6. LISINOPRIL [Concomitant]
     Indication: HYPERTENSION
  7. HUMIRA [Suspect]
     Indication: PSORIASIS

REACTIONS (1)
  - PAIN [None]
